FAERS Safety Report 5322898-5 (Version None)
Quarter: 2007Q2

REPORT INFORMATION
  Report Type: 
  Country: None (occurrence: None)
  Receive Date: 20070511
  Receipt Date: 20070507
  Transmission Date: 20071010
  Serious: Yes (Other)
  Sender: FDA-Public Use
  Company Number: US-PFIZER INC-2007036499

PATIENT
  Sex: Male
  Weight: 120.2 kg

DRUGS (5)
  1. ZOLOFT [Suspect]
  2. CHANTIX [Suspect]
     Indication: SMOKING CESSATION THERAPY
  3. SEROQUEL [Concomitant]
  4. WELLBUTRIN [Concomitant]
  5. ALL OTHER THERAPEUTIC PRODUCTS [Concomitant]

REACTIONS (2)
  - ANXIETY [None]
  - SHOULDER OPERATION [None]
